FAERS Safety Report 5136328-X (Version None)
Quarter: 2006Q4

REPORT INFORMATION
  Report Type: 
  Country: None (occurrence: None)
  Receive Date: 20061027
  Receipt Date: 20061024
  Transmission Date: 20070319
  Serious: Yes (Death)
  Sender: FDA-Public Use
  Company Number: UG-GLAXOSMITHKLINE-B0444053A

PATIENT
  Sex: Male
  Weight: 6.3 kg

DRUGS (2)
  1. ALBENDAZOLE [Suspect]
     Indication: HELMINTHIC INFECTION
  2. PRAZIQUANTEL [Suspect]
     Indication: HELMINTHIC INFECTION

REACTIONS (5)
  - DEATH [None]
  - DIARRHOEA [None]
  - ECZEMA INFANTILE [None]
  - PYREXIA [None]
  - RHINITIS [None]
